FAERS Safety Report 5353369-8 (Version None)
Quarter: 2007Q2

REPORT INFORMATION
  Report Type: 
  Country: None (occurrence: None)
  Receive Date: 20070518
  Receipt Date: 20070330
  Transmission Date: 20071010
  Serious: No
  Sender: FDA-Public Use
  Company Number: TPA2007A00717

PATIENT
  Sex: Female

DRUGS (3)
  1. ROZEREM [Suspect]
     Dosage: PER ORAL
     Route: 048
  2. CELEBREX [Concomitant]
  3. EFFEXOR [Concomitant]

REACTIONS (3)
  - ANXIETY [None]
  - MIDDLE INSOMNIA [None]
  - PAIN IN EXTREMITY [None]
